FAERS Safety Report 8046221-0 (Version None)
Quarter: 2012Q1

REPORT INFORMATION
  Report Type: 
  Country: None (occurrence: None)
  Receive Date: 20120113
  Receipt Date: 20120103
  Transmission Date: 20120608
  Serious: Yes (Hospitalization)
  Sender: FDA-Public Use
  Company Number: FR-SANOFI-AVENTIS-2012SA000497

PATIENT
  Age: 82 Year
  Sex: Male

DRUGS (6)
  1. ARANESP [Suspect]
  2. LASIX [Suspect]
     Route: 048
  3. ALFUZOSIN HCL [Suspect]
     Indication: BENIGN PROSTATIC HYPERPLASIA
     Dates: end: 20110803
  4. PANTOPRAZOLE [Suspect]
     Route: 048
  5. ATHYMIL [Suspect]
     Route: 048
  6. CORDARONE [Suspect]
     Indication: ATRIAL FIBRILLATION
     Route: 048

REACTIONS (1)
  - RENAL FAILURE [None]
